FAERS Safety Report 21784487 (Version 11)
Quarter: 2023Q4

REPORT INFORMATION
  Report Type: Spontaneous
  Country: US (occurrence: US)
  Receive Date: 20221227
  Receipt Date: 20231218
  Transmission Date: 20240109
  Serious: Yes (Other)
  Sender: FDA-Public Use
  Company Number: US-PFIZER INC-202201384474

PATIENT
  Age: 74 Year
  Sex: Male
  Weight: 95.25 kg

DRUGS (12)
  1. BRAFTOVI [Suspect]
     Active Substance: ENCORAFENIB
     Indication: Thyroid cancer
     Dosage: 75 MG, 1X/DAY (4 DF PER DAY)
  2. BRAFTOVI [Suspect]
     Active Substance: ENCORAFENIB
     Indication: Metastatic malignant melanoma
     Dosage: 75 MG (ONE BRAFTOVI)
  3. BRAFTOVI [Suspect]
     Active Substance: ENCORAFENIB
     Dosage: 150 MG, 1X/DAY (LAST COUPLE OF NIGHTS I TOOK 2 BRAFTOVI)
     Dates: start: 2022
  4. BRAFTOVI [Suspect]
     Active Substance: ENCORAFENIB
     Dosage: 75 MG
  5. BRAFTOVI [Suspect]
     Active Substance: ENCORAFENIB
     Dosage: 5 DF, DAILY (AT NIGHT)
  6. BRAFTOVI [Suspect]
     Active Substance: ENCORAFENIB
     Dosage: 450 MG, DAILY
     Route: 048
  7. MEKTOVI [Suspect]
     Active Substance: BINIMETINIB
     Indication: Thyroid cancer
     Dosage: 30 MG, 1X/DAY (2 DF PER DAY)
  8. MEKTOVI [Suspect]
     Active Substance: BINIMETINIB
     Indication: Metastatic malignant melanoma
     Dosage: 15 MG (ONE MEKTOVI)
  9. MEKTOVI [Suspect]
     Active Substance: BINIMETINIB
     Dosage: 15 MG, 1X/DAY (LAST COUPLE OF NIGHTS I TOOK 2 BRAFTOVI AND 1 MEKTOVI)
     Dates: start: 2022
  10. MEKTOVI [Suspect]
     Active Substance: BINIMETINIB
     Dosage: 15 MG
  11. MEKTOVI [Suspect]
     Active Substance: BINIMETINIB
     Dosage: 5 DF, DAILY (2 IN THE MORNING AND 3 AT NIGHT)
  12. MEKTOVI [Suspect]
     Active Substance: BINIMETINIB
     Dosage: 45 MG, 2X/DAY
     Route: 048

REACTIONS (11)
  - Haematemesis [Unknown]
  - Off label use [Unknown]
  - Intentional underdose [Unknown]
  - Neoplasm progression [Unknown]
  - Brain fog [Unknown]
  - Disturbance in attention [Not Recovered/Not Resolved]
  - Fatigue [Unknown]
  - Heart valve calcification [Unknown]
  - Headache [Unknown]
  - Illness [Unknown]
  - Hypertension [Unknown]
